FAERS Safety Report 20050709 (Version 1)
Quarter: 2021Q4

REPORT INFORMATION
  Report Type: Spontaneous
  Country: IN (occurrence: IN)
  Receive Date: 20211109
  Receipt Date: 20211109
  Transmission Date: 20220303
  Serious: Yes (Other)
  Sender: FDA-Public Use
  Company Number: IN-DRL-LIT/IND/21/0143475

PATIENT
  Age: 10 Year
  Sex: Female

DRUGS (7)
  1. CLOPIDOGREL [Suspect]
     Active Substance: CLOPIDOGREL BISULFATE
     Indication: Acute coronary syndrome
     Dosage: (1?2MG/KG)
  2. ROSUVASTATIN [Suspect]
     Active Substance: ROSUVASTATIN
     Indication: Acute coronary syndrome
  3. ROSUVASTATIN [Suspect]
     Active Substance: ROSUVASTATIN
     Indication: Type IIa hyperlipidaemia
  4. EZETIMIBE [Suspect]
     Active Substance: EZETIMIBE
     Indication: Acute coronary syndrome
  5. EZETIMIBE [Suspect]
     Active Substance: EZETIMIBE
     Indication: Type IIa hyperlipidaemia
  6. ASPIRIN [Suspect]
     Active Substance: ASPIRIN
     Indication: Acute coronary syndrome
     Dosage: (5?8MG/KG)
  7. HEPARIN [Suspect]
     Active Substance: HEPARIN SODIUM
     Indication: Acute coronary syndrome
     Route: 042

REACTIONS (2)
  - Drug ineffective [Unknown]
  - Off label use [Unknown]
